FAERS Safety Report 12076656 (Version 2)
Quarter: 2016Q1

REPORT INFORMATION
  Report Type: Spontaneous
  Country: JP (occurrence: JP)
  Receive Date: 20160215
  Receipt Date: 20160329
  Transmission Date: 20160526
  Serious: Yes (Hospitalization)
  Sender: FDA-Public Use
  Company Number: JP-JNJFOC-20160212159

PATIENT
  Age: 4 Decade
  Sex: Female

DRUGS (2)
  1. AZANIN [Suspect]
     Active Substance: AZATHIOPRINE
     Indication: COLITIS ULCERATIVE
     Route: 065
  2. REMICADE [Suspect]
     Active Substance: INFLIXIMAB
     Indication: COLITIS ULCERATIVE
     Route: 042

REACTIONS (4)
  - Histiocytosis haematophagic [Recovering/Resolving]
  - Aplastic anaemia [Recovering/Resolving]
  - Stomatitis [Recovered/Resolved]
  - Eczema [Recovered/Resolved]
